FAERS Safety Report 5748537-7 (Version None)
Quarter: 2008Q2

REPORT INFORMATION
  Report Type: 
  Country: None (occurrence: None)
  Receive Date: 20080521
  Receipt Date: 20080501
  Transmission Date: 20081010
  Serious: Yes (Other)
  Sender: FDA-Public Use
  Company Number: CHPA2008US07883

PATIENT
  Age: 68 Year
  Sex: Male

DRUGS (2)
  1. 4 WAY FAST ACTING NASAL SPRAY (NCH)(PHENYLEPHRINE) NASAL SPRAY [Suspect]
     Indication: NASAL CONGESTION
     Dosage: 1 SPRAY, 10 TIMES DAILY, NASAL
     Route: 045
  2. DRUG THERAPY NOS (DRUG THERPAY NOS) [Concomitant]

REACTIONS (3)
  - DRUG DEPENDENCE [None]
  - DRUG INEFFECTIVE [None]
  - INTENTIONAL DRUG MISUSE [None]
